FAERS Safety Report 4366945-6 (Version None)
Quarter: 2004Q2

REPORT INFORMATION
  Report Type: 
  Country: None (occurrence: None)
  Receive Date: 20040527
  Receipt Date: 20040527
  Transmission Date: 20050107
  Serious: Yes (Hospitalization)
  Sender: FDA-Public Use
  Company Number: None

PATIENT
  Age: 97 Year
  Sex: Female
  Weight: 50.2 kg

DRUGS (4)
  1. ASPIRIN [Suspect]
     Dosage: 81MG DAILY ORAL
     Route: 048
  2. ROFECOXIB [Suspect]
     Indication: OSTEOARTHRITIS
     Dosage: 25MG DAILY ORAL
     Route: 048
  3. CARDIZEM [Concomitant]
  4. AMIODARONE HCL [Concomitant]

REACTIONS (3)
  - HAEMATEMESIS [None]
  - HAEMATOCHEZIA [None]
  - SYNCOPE [None]
